FAERS Safety Report 10904476 (Version 1)
Quarter: 2015Q1

REPORT INFORMATION
  Report Type: Spontaneous
  Country: US (occurrence: None)
  Receive Date: 20150304
  Receipt Date: 20150304
  Transmission Date: 20150721
  Serious: No
  Sender: FDA-Public Use
  Company Number: None

PATIENT
  Age: 54 Year
  Sex: Male
  Weight: 64.7 kg

DRUGS (2)
  1. TAXOTERE [Concomitant]
     Active Substance: DOCETAXEL
     Dates: end: 20131101
  2. CISPLATIN. [Suspect]
     Active Substance: CISPLATIN
     Dates: end: 20131101

REACTIONS (5)
  - Febrile neutropenia [None]
  - Asthenia [None]
  - Blood magnesium decreased [None]
  - Hypophagia [None]
  - Malaise [None]

NARRATIVE: CASE EVENT DATE: 20131108
